FAERS Safety Report 4757361-3 (Version None)
Quarter: 2005Q3

REPORT INFORMATION
  Report Type: 
  Country: None (occurrence: None)
  Receive Date: 20050831
  Receipt Date: 20050704
  Transmission Date: 20060218
  Serious: Yes (Death)
  Sender: FDA-Public Use
  Company Number: KR-JNJFOC-20050700814

PATIENT
  Sex: Male
  Weight: 52 kg

DRUGS (5)
  1. SPORANOX [Suspect]
     Route: 042
     Dates: start: 20040917
  2. SPORANOX [Suspect]
     Route: 042
     Dates: start: 20040917
  3. MAXIPIME [Concomitant]
     Route: 042
     Dates: start: 20040911, end: 20040919
  4. VANCOCIN HCL [Concomitant]
     Route: 042
     Dates: start: 20040911, end: 20040919
  5. FUNGIZONE [Concomitant]
     Route: 042
     Dates: start: 20040913, end: 20040916

REACTIONS (2)
  - MULTI-ORGAN FAILURE [None]
  - SEPSIS [None]
